FAERS Safety Report 6763689-8 (Version None)
Quarter: 2010Q2

REPORT INFORMATION
  Report Type: 
  Country: None (occurrence: None)
  Receive Date: 20100610
  Receipt Date: 20100602
  Transmission Date: 20101027
  Serious: Yes (Death, Hospitalization, Other)
  Sender: FDA-Public Use
  Company Number: FR-MPIJNJ-2010-02295

PATIENT

DRUGS (12)
  1. VELCADE [Suspect]
     Indication: MULTIPLE MYELOMA
     Dosage: 1.3 MG/M2, UNK
     Route: 042
     Dates: start: 20100204, end: 20100318
  2. DEXAMETHASONE [Suspect]
     Indication: MULTIPLE MYELOMA
     Dosage: 20 MG, UNK
     Route: 048
     Dates: start: 20100204, end: 20100318
  3. ENDOXAN                            /00021101/ [Suspect]
     Indication: MULTIPLE MYELOMA
     Dosage: 150 MG, UNK
     Route: 048
     Dates: start: 20100204, end: 20100318
  4. PREVISCAN                          /00261401/ [Concomitant]
     Indication: ANTICOAGULATION DRUG LEVEL
  5. LOVENOX [Concomitant]
     Indication: VENOUS INSUFFICIENCY
     Dosage: UNK
     Route: 058
     Dates: start: 20100324
  6. ZYLORIC                            /00003301/ [Concomitant]
     Indication: GOUT
     Dosage: 100 MG, UNK
     Route: 048
     Dates: start: 20100325, end: 20100510
  7. PARACETAMOL [Concomitant]
     Indication: PAIN
     Dosage: 400 MG, UNK
     Dates: start: 20100324, end: 20100331
  8. CLAMOXYL                           /00249601/ [Concomitant]
     Indication: ERYSIPELAS
     Dosage: 1 G, UNK
     Dates: start: 20100325, end: 20100408
  9. OXYCONTIN [Concomitant]
     Indication: PAIN
     Dosage: UNK
     Route: 048
     Dates: start: 20100403, end: 20100423
  10. OXYCODONE HCL [Concomitant]
     Indication: PAIN
     Dosage: 5 MG, UNK
     Dates: start: 20100331, end: 20100424
  11. OXYCODONE HCL [Concomitant]
     Dosage: 5 MG, UNK
     Dates: start: 20100430, end: 20100510
  12. NEORECORMON [Concomitant]
     Dosage: UNK
     Dates: start: 20100331

REACTIONS (5)
  - BRONCHIAL OBSTRUCTION [None]
  - ERYSIPELAS [None]
  - GENERAL PHYSICAL HEALTH DETERIORATION [None]
  - MULTIPLE MYELOMA [None]
  - NEUROPATHY PERIPHERAL [None]
